FAERS Safety Report 4550190-5 (Version None)
Quarter: 2005Q1

REPORT INFORMATION
  Report Type: 
  Country: None (occurrence: None)
  Receive Date: 20050112
  Receipt Date: 20041123
  Transmission Date: 20050727
  Serious: No
  Sender: FDA-Public Use
  Company Number: US-MERCK-0411USA03837

PATIENT
  Age: 71 Year
  Sex: Male
  Weight: 97 kg

DRUGS (9)
  1. VIOXX [Suspect]
     Indication: ARTHRALGIA
     Route: 048
     Dates: start: 20040601, end: 20040901
  2. VIOXX [Suspect]
     Indication: NEUROPATHY PERIPHERAL
     Route: 048
     Dates: start: 20040601, end: 20040901
  3. NEXIUM [Concomitant]
     Route: 065
  4. WARFARIN [Concomitant]
     Route: 065
  5. PRAVACHOL [Concomitant]
     Route: 065
  6. DIOVAN [Concomitant]
     Route: 065
  7. HYDROXYCHLOROQUINE SULFATE [Concomitant]
     Route: 065
  8. NEURONTIN [Concomitant]
     Route: 065
  9. PROBENECID [Concomitant]
     Route: 065

REACTIONS (2)
  - BALANCE DISORDER [None]
  - PAIN IN EXTREMITY [None]
